FAERS Safety Report 8157572-3 (Version None)
Quarter: 2012Q1

REPORT INFORMATION
  Report Type: 
  Country: None (occurrence: None)
  Receive Date: 20120222
  Receipt Date: 20110812
  Transmission Date: 20120608
  Serious: No
  Sender: FDA-Public Use
  Company Number: US-ASTRAZENECA-2011SE49058

PATIENT
  Sex: Male

DRUGS (10)
  1. HYDROCHLOROTHIAZIDE [Concomitant]
  2. CRESTOR [Suspect]
     Route: 048
  3. LEVAQUIN [Concomitant]
  4. POTASSIUM CL ER [Concomitant]
  5. ATENOLOL [Suspect]
     Route: 048
  6. EXFORGE [Concomitant]
  7. CLONIDINE [Concomitant]
  8. CHERATUSSIN AC [Concomitant]
  9. AZITHROMYCIN [Concomitant]
  10. PREDNISONE [Concomitant]

REACTIONS (1)
  - COUGH [None]
